FAERS Safety Report 5101562-1 (Version None)
Quarter: 2006Q3

REPORT INFORMATION
  Report Type: 
  Country: None (occurrence: None)
  Receive Date: 20060911
  Receipt Date: 20060906
  Transmission Date: 20061208
  Serious: Yes (Hospitalization, Other)
  Sender: FDA-Public Use
  Company Number: CL-BRISTOL-MYERS SQUIBB COMPANY-13500079

PATIENT
  Age: 61 Year
  Sex: Female

DRUGS (11)
  1. CISPLATIN [Suspect]
     Indication: GASTRIC CANCER
     Route: 042
     Dates: start: 20060804, end: 20060804
  2. FLUOROURACIL [Suspect]
     Indication: GASTRIC CANCER
     Route: 042
     Dates: start: 20060804, end: 20060809
  3. NYSTATIN [Concomitant]
     Indication: ANTIFUNGAL PROPHYLAXIS
     Dates: start: 20060804, end: 20060822
  4. TRAMADOL HCL [Concomitant]
     Indication: ANALGESIC EFFECT
     Route: 042
     Dates: start: 20060817
  5. PARACETAMOL [Concomitant]
     Indication: STOMATITIS
     Route: 048
     Dates: start: 20060809
  6. PARACETAMOL [Concomitant]
     Route: 048
     Dates: start: 20060818
  7. FLUCONAZOLE [Concomitant]
     Indication: ANTIFUNGAL PROPHYLAXIS
     Route: 048
     Dates: start: 20060818
  8. TRAMADOL HCL [Concomitant]
     Route: 042
     Dates: start: 20060817
  9. CEFTRIAXONE SODIUM [Concomitant]
     Indication: ANTIBIOTIC PROPHYLAXIS
     Route: 042
     Dates: start: 20060817
  10. CIPROFLOXACIN [Concomitant]
     Indication: ANTIBIOTIC PROPHYLAXIS
     Route: 042
     Dates: start: 20060817
  11. HEXETIDINE [Concomitant]
     Indication: STOMATITIS
     Route: 048
     Dates: start: 20060804, end: 20060822

REACTIONS (3)
  - DEHYDRATION [None]
  - FEBRILE NEUTROPENIA [None]
  - STOMATITIS [None]
